FAERS Safety Report 8708892 (Version 3)
Quarter: 2012Q4

REPORT INFORMATION
  Report Type: Report from Study
  Country: DE (occurrence: DE)
  Receive Date: 20120806
  Receipt Date: 20121129
  Transmission Date: 20130627
  Serious: Yes (Life-Threatening, Hospitalization)
  Sender: FDA-Public Use
  Company Number: DE-ROCHE-1095559

PATIENT
  Age: 49 Year
  Sex: Female
  Weight: 62 kg

DRUGS (1)
  1. METHOXY POLYETHYLENE GLYCOL-EPOETIN BETA [Suspect]
     Indication: NEPHROGENIC ANAEMIA
     Dosage: Last dose prior to SAE: 09/JAN/2012
     Route: 058
     Dates: start: 20101025

REACTIONS (3)
  - Hysterectomy [Recovered/Resolved]
  - Postoperative wound infection [Recovered/Resolved]
  - Renal failure [Recovered/Resolved]
